FAERS Safety Report 5999096-5 (Version None)
Quarter: 2008Q4

REPORT INFORMATION
  Report Type: 
  Country: None (occurrence: None)
  Receive Date: 20081215
  Receipt Date: 20081205
  Transmission Date: 20090506
  Serious: Yes (Hospitalization)
  Sender: FDA-Public Use
  Company Number: US-JNJFOC-20081202038

PATIENT
  Age: 45 Year
  Sex: Female
  Weight: 51.94 kg

DRUGS (7)
  1. DURAGESIC-100 [Suspect]
     Indication: PAIN
     Route: 062
  2. DILAUDID [Suspect]
     Indication: PAIN
     Route: 048
  3. ACETAMINOPHEN AND HYDROCODONE BITARTRATE [Suspect]
     Indication: PAIN
     Route: 048
  4. SCH [Suspect]
     Indication: NEOPLASM MALIGNANT
     Route: 042
  5. CELEBREX [Concomitant]
     Route: 048
  6. LEVAQUIN [Concomitant]
     Route: 048
  7. DEXAMETHASONE [Concomitant]
     Route: 048

REACTIONS (2)
  - CONSTIPATION [None]
  - NEOPLASM PROGRESSION [None]
